FAERS Safety Report 8857768 (Version 1)
Quarter: 2012Q4

REPORT INFORMATION
  Report Type: 
  Country: FR (occurrence: FR)
  Receive Date: 20121024
  Receipt Date: 20121024
  Transmission Date: 20130627
  Serious: Yes (Death, Hospitalization)
  Sender: FDA-Public Use
  Company Number: FR-ARROW-2012-18140

PATIENT
  Age: 42 Year
  Sex: Male

DRUGS (5)
  1. METFORMIN HYDROCHLORIDE [Suspect]
     Indication: TYPE 2 DIABETES MELLITUS
     Dosage: UNK
     Route: 065
  2. IBUPROFEN [Suspect]
     Indication: PRODUCT USED FOR UNKNOWN INDICATION
     Dosage: UNK
     Route: 065
  3. TIAPROFENIC ACID [Suspect]
     Indication: PRODUCT USED FOR UNKNOWN INDICATION
     Dosage: UNK
     Route: 065
  4. DOMPERIDONE [Concomitant]
     Indication: PRODUCT USED FOR UNKNOWN INDICATION
     Dosage: UNK
     Route: 065
  5. BUFLOMEDIL [Concomitant]
     Indication: PRODUCT USED FOR UNKNOWN INDICATION

REACTIONS (19)
  - Shock [Fatal]
  - Renal impairment [Not Recovered/Not Resolved]
  - Depressed level of consciousness [Not Recovered/Not Resolved]
  - Suicide attempt [Not Recovered/Not Resolved]
  - Overdose [Fatal]
  - Lactic acidosis [Fatal]
  - Acute respiratory distress syndrome [Not Recovered/Not Resolved]
  - Confusional state [Not Recovered/Not Resolved]
  - Bradycardia [Not Recovered/Not Resolved]
  - Dehydration [Not Recovered/Not Resolved]
  - Blood glucose increased [None]
  - Blood sodium decreased [None]
  - Haemoglobin increased [None]
  - Haematocrit increased [None]
  - Blood pressure diastolic decreased [None]
  - Oesophagitis [None]
  - Gastric ulcer [None]
  - Gastritis [None]
  - Continuous haemodiafiltration [None]
